FAERS Safety Report 8111537-6 (Version None)
Quarter: 2012Q1

REPORT INFORMATION
  Report Type: 
  Country: None (occurrence: None)
  Receive Date: 20120202
  Receipt Date: 20120202
  Transmission Date: 20120608
  Serious: No
  Sender: FDA-Public Use
  Company Number: None

PATIENT
  Sex: Male

DRUGS (2)
  1. GLIMEPIRIDE [Suspect]
     Indication: DIABETES MELLITUS
     Dosage: 4MG AM ORAL
     Route: 048
  2. GLIMEPIRIDE [Suspect]
     Dosage: 2 MG PM

REACTIONS (1)
  - BLOOD GLUCOSE INCREASED [None]
